FAERS Safety Report 7672940-1 (Version None)
Quarter: 2011Q3

REPORT INFORMATION
  Report Type: 
  Country: None (occurrence: None)
  Receive Date: 20110809
  Receipt Date: 20110801
  Transmission Date: 20111222
  Serious: Yes (Death)
  Sender: FDA-Public Use
  Company Number: PL-GENENTECH-322490

PATIENT
  Sex: Male
  Weight: 70 kg

DRUGS (3)
  1. BENDAMUSTINE [Suspect]
     Indication: CHRONIC LYMPHOCYTIC LEUKAEMIA
     Dosage: 130 MG, X2
     Route: 042
     Dates: start: 20110120, end: 20110121
  2. RITUXIMAB [Suspect]
     Indication: CHRONIC LYMPHOCYTIC LEUKAEMIA
     Dosage: 700 MG, SINGLE
     Route: 042
     Dates: start: 20110119, end: 20110120
  3. BISOPROLOL FUMARATE [Concomitant]
     Indication: HYPERTENSION
     Dosage: 5 MG, QD
     Route: 048
     Dates: start: 20050101

REACTIONS (3)
  - INFLUENZA [None]
  - ENCEPHALITIS [None]
  - PNEUMONIA [None]
